FAERS Safety Report 12560877 (Version 1)
Quarter: 2016Q3

REPORT INFORMATION
  Report Type: Spontaneous
  Country: US (occurrence: US)
  Receive Date: 20160715
  Receipt Date: 20160715
  Transmission Date: 20161109
  Serious: No
  Sender: FDA-Public Use
  Company Number: US-009507513-1606USA014486

PATIENT
  Age: 74 Year
  Sex: Male

DRUGS (1)
  1. CLARINEX [Suspect]
     Active Substance: DESLORATADINE
     Dosage: UNK
     Route: 048

REACTIONS (1)
  - Product name confusion [Unknown]
